FAERS Safety Report 7457870-2 (Version None)
Quarter: 2011Q2

REPORT INFORMATION
  Report Type: 
  Country: None (occurrence: None)
  Receive Date: 20110504
  Receipt Date: 20110422
  Transmission Date: 20111010
  Serious: Yes (Hospitalization, Other)
  Sender: FDA-Public Use
  Company Number: PHHY2010US55101

PATIENT
  Sex: Female
  Weight: 63 kg

DRUGS (22)
  1. HUMALOG [Concomitant]
  2. EXJADE [Suspect]
     Dosage: 1000 MG, DAILY
     Route: 048
     Dates: start: 20100708
  3. CITRACAL [Concomitant]
  4. ASPIRIN [Concomitant]
  5. SYNTHROID [Concomitant]
     Indication: HYPOTHYROIDISM
     Dosage: 100 MG,DAILY
     Route: 048
  6. CLARITIN [Concomitant]
     Indication: SEASONAL ALLERGY
     Dosage: 10 MG,DAILY
     Route: 048
  7. PRED FORTE [Concomitant]
     Indication: GLAUCOMA
     Dosage: UNK
  8. EXJADE [Suspect]
     Indication: MYELODYSPLASTIC SYNDROME
     Dosage: 250 MG, DAILY
     Route: 048
     Dates: start: 20100623, end: 20100806
  9. CHONDROITIN [Concomitant]
  10. DECITABINE [Concomitant]
     Dosage: UNK
  11. BETAGAN [Concomitant]
     Indication: GLAUCOMA
     Dosage: 1 GTT, UNK
  12. EXJADE [Suspect]
     Indication: IRON OVERLOAD
     Dosage: 250 MG, DAILY
     Route: 048
     Dates: start: 20100819
  13. ZINC [Concomitant]
  14. BLOOD TRANSFUSION [Concomitant]
  15. EXJADE [Suspect]
     Dosage: 500 MG, BID
     Route: 048
     Dates: start: 20100819, end: 20110413
  16. GLUCOSAMINE [Concomitant]
  17. TYLENOL-500 [Concomitant]
  18. LISINOPRIL [Concomitant]
  19. MAGNESIUM [Concomitant]
  20. LIPITOR [Concomitant]
     Indication: BLOOD CHOLESTEROL INCREASED
     Dosage: 40 MG, UNK
     Route: 048
  21. FOSAMAX [Concomitant]
  22. NEURONTIN [Concomitant]

REACTIONS (11)
  - NEOPLASM MALIGNANT [None]
  - WHITE BLOOD CELL COUNT DECREASED [None]
  - HAEMOGLOBIN DECREASED [None]
  - DIZZINESS [None]
  - PLATELET COUNT DECREASED [None]
  - NEUTROPHIL COUNT DECREASED [None]
  - HAEMATOCRIT DECREASED [None]
  - VISION BLURRED [None]
  - HYPOTENSION [None]
  - FEBRILE NEUTROPENIA [None]
  - LOSS OF CONSCIOUSNESS [None]
